FAERS Safety Report 4476610-2 (Version None)
Quarter: 2004Q4

REPORT INFORMATION
  Report Type: 
  Country: None (occurrence: None)
  Receive Date: 20041013
  Receipt Date: 20040929
  Transmission Date: 20050328
  Serious: Yes (Other)
  Sender: FDA-Public Use
  Company Number: US_0410106300

PATIENT
  Age: 12 Year

DRUGS (1)
  1. PROZAC [Suspect]

REACTIONS (6)
  - AFFECT LABILITY [None]
  - AGITATION [None]
  - DEPERSONALISATION [None]
  - HOSTILITY [None]
  - MANIA [None]
  - MURDER [None]
